FAERS Safety Report 25524692 (Version 1)
Quarter: 2025Q3

REPORT INFORMATION
  Report Type: Spontaneous
  Country: AU (occurrence: None)
  Receive Date: 20250705
  Receipt Date: 20250705
  Transmission Date: 20251021
  Serious: Yes (Hospitalization, Disabling, Other)
  Sender: FDA-CTU
  Company Number: None

PATIENT
  Age: 46 Year
  Sex: Female
  Weight: 70 kg

DRUGS (5)
  1. ESCITALOPRAM [Suspect]
     Active Substance: ESCITALOPRAM OXALATE
     Indication: Postpartum anxiety
     Route: 048
     Dates: start: 20200401, end: 20220201
  2. CITALOPRAM [Suspect]
     Active Substance: CITALOPRAM
  3. DEXTROAMPHETAMINE [Suspect]
     Active Substance: DEXTROAMPHETAMINE
  4. PENTASA [Concomitant]
     Active Substance: MESALAMINE
  5. Probiotics Cucurmin Fish oil [Concomitant]

REACTIONS (18)
  - Heart rate increased [None]
  - Incoherent [None]
  - Disorganised speech [None]
  - Visual impairment [None]
  - Gait disturbance [None]
  - Bedridden [None]
  - Decreased activity [None]
  - Sensory disturbance [None]
  - Anxiety [None]
  - Electrocardiogram QT prolonged [None]
  - Gastrointestinal disorder [None]
  - Constipation [None]
  - Colitis ulcerative [None]
  - Brain fog [None]
  - Confusional state [None]
  - Depression [None]
  - Anger [None]
  - Self-injurious ideation [None]
